FAERS Safety Report 16155056 (Version 2)
Quarter: 2019Q2

REPORT INFORMATION
  Report Type: Spontaneous
  Country: DE (occurrence: DE)
  Receive Date: 20190403
  Receipt Date: 20190403
  Transmission Date: 20190711
  Serious: Yes (Other)
  Sender: FDA-Public Use
  Company Number: PHHY2019DE070331

PATIENT
  Age: 73 Year
  Sex: Male
  Weight: 74 kg

DRUGS (4)
  1. HERZASS ^RATIOPHARM^ [Concomitant]
     Indication: PRODUCT USED FOR UNKNOWN INDICATION
     Dosage: 100 MG, QD (DAUERMEDIKATION)
     Route: 048
  2. PREDNISOLON [Suspect]
     Active Substance: PREDNISOLONE
     Indication: PRODUCT USED FOR UNKNOWN INDICATION
     Dosage: PREDNISOLON 80MG, 2MG BIS 1/2019, ANSCHLIE?END ABSETZEN BIS 02/2019
     Route: 065
  3. CARVEDILOL 1A PHARMA [Concomitant]
     Active Substance: CARVEDILOL
     Indication: PRODUCT USED FOR UNKNOWN INDICATION
     Dosage: 12 MG, Q12H (DAUERMEDIKATION)
     Route: 048
  4. RAMIPRIL. [Concomitant]
     Active Substance: RAMIPRIL
     Indication: PRODUCT USED FOR UNKNOWN INDICATION
     Dosage: 5 MG, Q12H (ABZ, DAUERMEDIKATION)
     Route: 048

REACTIONS (2)
  - Pancreatitis [Unknown]
  - Cholecystitis acute [Unknown]
